FAERS Safety Report 7426162-X (Version None)
Quarter: 2011Q2

REPORT INFORMATION
  Report Type: 
  Country: None (occurrence: None)
  Receive Date: 20110420
  Receipt Date: 20110417
  Transmission Date: 20111010
  Serious: Yes (Death)
  Sender: FDA-Public Use
  Company Number: PHHY2011US32392

PATIENT
  Sex: Male

DRUGS (1)
  1. EXELON [Suspect]
     Indication: DEMENTIA
     Dosage: 9.5MG/24HR
     Route: 062

REACTIONS (3)
  - HEAD INJURY [None]
  - NECK INJURY [None]
  - ACCIDENT [None]
